FAERS Safety Report 7788158-8 (Version None)
Quarter: 2011Q3

REPORT INFORMATION
  Report Type: 
  Country: None (occurrence: None)
  Receive Date: 20110929
  Receipt Date: 20110929
  Transmission Date: 20111222
  Serious: Yes (Hospitalization)
  Sender: FDA-Public Use
  Company Number: None

PATIENT
  Age: 77 Year
  Sex: Male
  Weight: 108 kg

DRUGS (1)
  1. TERAZOSIN HCL [Suspect]
     Dosage: 5 MG EVERY DAY PO
     Route: 048
     Dates: start: 20090820, end: 20100713

REACTIONS (1)
  - HYPOTENSION [None]
